FAERS Safety Report 20333425 (Version 1)
Quarter: 2022Q1

REPORT INFORMATION
  Report Type: Spontaneous
  Country: US (occurrence: None)
  Receive Date: 20220113
  Receipt Date: 20220113
  Transmission Date: 20220423
  Serious: Yes (Other)
  Sender: FDA-Public Use
  Company Number: None

PATIENT
  Age: 66 Year
  Sex: Female
  Weight: 58.97 kg

DRUGS (4)
  1. PRIVIGEN [Suspect]
     Active Substance: HUMAN IMMUNOGLOBULIN G
     Indication: Blood immunoglobulin G decreased
     Dosage: OTHER FREQUENCY : EVRY 6 WKS;?
     Route: 042
     Dates: start: 20201228
  2. PRIVIGEN [Suspect]
     Active Substance: HUMAN IMMUNOGLOBULIN G
     Indication: Hypogammaglobulinaemia
  3. PRIVIGEN [Suspect]
     Active Substance: HUMAN IMMUNOGLOBULIN G
     Indication: Blood immunoglobulin G decreased
     Dosage: OTHER FREQUENCY : EVRY 6 WKS;?
     Route: 042
     Dates: start: 20201228
  4. PRIVIGEN [Suspect]
     Active Substance: HUMAN IMMUNOGLOBULIN G
     Indication: Hypogammaglobulinaemia

REACTIONS (7)
  - Infusion related reaction [None]
  - Rash [None]
  - Urticaria [None]
  - Bronchitis [None]
  - Pyrexia [None]
  - Oropharyngeal pain [None]
  - Dyspnoea [None]

NARRATIVE: CASE EVENT DATE: 20220110
